FAERS Safety Report 9153014 (Version 5)
Quarter: 2013Q2

REPORT INFORMATION
  Report Type: Spontaneous
  Country: None (occurrence: GB)
  Receive Date: 20130310
  Receipt Date: 20130507
  Transmission Date: 20140414
  Serious: Yes (Other)
  Sender: FDA-Public Use
  Company Number: GB-TEVA-390689ISR

PATIENT
  Age: 68 Year
  Sex: Male
  Weight: 80 kg

DRUGS (2)
  1. TEVA AMLODIPINE [Suspect]
     Indication: BLOOD PRESSURE INCREASED
     Dosage: 10 MILLIGRAM DAILY;
     Route: 048
     Dates: start: 20121106
  2. ATORVASTATIN [Concomitant]
     Dosage: 20 MILLIGRAM DAILY;
     Route: 048

REACTIONS (5)
  - Choking [Recovered/Resolved]
  - Cough [Recovered/Resolved]
  - Oropharyngeal pain [Unknown]
  - Oral administration complication [Recovered/Resolved]
  - Burning sensation [Recovered/Resolved]
